FAERS Safety Report 25687085 (Version 1)
Quarter: 2025Q3

REPORT INFORMATION
  Report Type: Spontaneous
  Country: US (occurrence: US)
  Receive Date: 20250816
  Receipt Date: 20250816
  Transmission Date: 20251020
  Serious: No
  Sender: ELI LILLY AND COMPANY
  Company Number: US-ELI_LILLY_AND_COMPANY-US202508009078

PATIENT
  Age: 26 Year
  Sex: Female

DRUGS (4)
  1. ZEPBOUND [Suspect]
     Active Substance: TIRZEPATIDE
     Indication: Injection site reaction
     Route: 065
     Dates: start: 20250714, end: 20250805
  2. ZEPBOUND [Suspect]
     Active Substance: TIRZEPATIDE
     Indication: Injection site reaction
     Route: 065
     Dates: start: 20250714, end: 20250805
  3. ZEPBOUND [Suspect]
     Active Substance: TIRZEPATIDE
     Indication: Injection site reaction
     Route: 065
     Dates: start: 20250714, end: 20250805
  4. ZEPBOUND [Suspect]
     Active Substance: TIRZEPATIDE
     Indication: Injection site reaction
     Route: 065
     Dates: start: 20250714, end: 20250805

REACTIONS (3)
  - Off label use [Unknown]
  - Injection site pruritus [Not Recovered/Not Resolved]
  - Injection site pain [Not Recovered/Not Resolved]

NARRATIVE: CASE EVENT DATE: 20250714
